FAERS Safety Report 10444844 (Version 4)
Quarter: 2014Q4

REPORT INFORMATION
  Report Type: Report from Study
  Country: US (occurrence: US)
  Receive Date: 20140910
  Receipt Date: 20141125
  Transmission Date: 20150528
  Serious: Yes (Hospitalization)
  Sender: FDA-Public Use
  Company Number: US-ACTELION-A-US2014-104573

PATIENT
  Age: 72 Year
  Sex: Male

DRUGS (27)
  1. NORVASC [Concomitant]
     Active Substance: AMLODIPINE BESYLATE
     Dosage: 10 MG, QD
  2. CHOLECALCIFEROL [Concomitant]
     Active Substance: CHOLECALCIFEROL
     Dosage: 2000 U, QD
  3. LEVEMIR [Concomitant]
     Active Substance: INSULIN DETEMIR
     Dosage: 100 U/L, QPM
  4. JANUVIA [Concomitant]
     Active Substance: SITAGLIPTIN PHOSPHATE
     Dosage: 100 MG, QD
  5. TRACLEER [Suspect]
     Active Substance: BOSENTAN\BOSENTAN MONOHYDRATE
     Indication: PULMONARY ARTERIAL HYPERTENSION
     Dosage: 125 MG, BID
     Route: 048
  6. AFRIN [Concomitant]
     Active Substance: OXYMETAZOLINE
     Dosage: 0.65 UNK, BID
  7. OXYBUTYNIN [Concomitant]
     Active Substance: OXYBUTYNIN
     Dosage: 5 MG, QD
  8. FLUTICASONE W/SALMETEROL [Concomitant]
     Active Substance: FLUTICASONE PROPIONATE\SALMETEROL XINAFOATE
     Dosage: UNK, BID
  9. SPIRIVA [Concomitant]
     Active Substance: TIOTROPIUM BROMIDE MONOHYDRATE
     Dosage: 18 MCG, UNK
  10. ATORVASTATIN [Concomitant]
     Active Substance: ATORVASTATIN
     Dosage: 40 MG, QPM
  11. OMEPRAZOLE. [Concomitant]
     Active Substance: OMEPRAZOLE
     Dosage: 10 MG, UNK
  12. FERROUS SULFATE [Concomitant]
     Active Substance: FERROUS SULFATE\FERROUS SULFATE, DRIED
     Dosage: 325 UNK, BID
  13. LORATADINE. [Concomitant]
     Active Substance: LORATADINE
     Dosage: 10 MG, QD
  14. POTASSIUM CHLORIDE. [Concomitant]
     Active Substance: POTASSIUM CHLORIDE
     Dosage: 20 MEQ, UNK
  15. CARVEDILOL. [Concomitant]
     Active Substance: CARVEDILOL
     Dosage: 12.5 MG, BID
  16. SUCRALFATE. [Concomitant]
     Active Substance: SUCRALFATE
     Dosage: 1 GM, UNK
  17. DULCOLAX [Concomitant]
     Active Substance: BISACODYL OR DOCUSATE SODIUM
     Dosage: 100 UNK, QD
  18. GAS-X [Concomitant]
     Active Substance: DIMETHICONE
     Dosage: UNK, QID
  19. DICYCLOMINE HCL [Concomitant]
     Active Substance: DICYCLOMINE HYDROCHLORIDE
     Dosage: 10 MG, UNK
  20. TAMSULOSIN [Concomitant]
     Active Substance: TAMSULOSIN
     Dosage: 0.4 MG, QPM
  21. FLONASE [Concomitant]
     Active Substance: FLUTICASONE PROPIONATE
     Dosage: 50 MCG, BID
  22. ALBUTEROL. [Concomitant]
     Active Substance: ALBUTEROL
     Dosage: 2.5 UNK, UNK
  23. ADVAIR HFA [Concomitant]
     Active Substance: FLUTICASONE PROPIONATE\SALMETEROL XINAFOATE
     Dosage: 115 MCG, BID
  24. PLAVIX [Concomitant]
     Active Substance: CLOPIDOGREL BISULFATE
     Dosage: 75 MG, UNK
  25. ASPIRIN. [Concomitant]
     Active Substance: ASPIRIN
     Dosage: 81 MG, UNK
  26. FUROSEMIDE. [Concomitant]
     Active Substance: FUROSEMIDE
     Dosage: 20 MG, UNK
  27. ISOSORBIDE MONONITRATE. [Concomitant]
     Active Substance: ISOSORBIDE MONONITRATE
     Dosage: UNK, BID

REACTIONS (8)
  - Renal disorder [Recovered/Resolved]
  - Pulmonary oedema [Unknown]
  - Syncope [Recovered/Resolved]
  - Diabetes mellitus [Recovered/Resolved]
  - Hypotension [Recovered/Resolved]
  - Cardiac failure congestive [Unknown]
  - Fluid overload [Unknown]
  - Oedema peripheral [Unknown]

NARRATIVE: CASE EVENT DATE: 20141007
